FAERS Safety Report 23272753 (Version 1)
Quarter: 2023Q4

REPORT INFORMATION
  Report Type: Spontaneous
  Country: US (occurrence: None)
  Receive Date: 20231206
  Receipt Date: 20231206
  Transmission Date: 20240110
  Serious: No
  Sender: FDA-Public Use
  Company Number: None

PATIENT
  Age: 70 Year
  Sex: Female
  Weight: 67.5 kg

DRUGS (4)
  1. PAXLOVID [Suspect]
     Active Substance: NIRMATRELVIR\RITONAVIR
     Indication: SARS-CoV-2 test positive
     Dates: start: 20231120, end: 20231124
  2. FLOVENT HFA [Concomitant]
     Active Substance: FLUTICASONE PROPIONATE
  3. CALCIUM\VITAMIN D [Concomitant]
     Active Substance: CALCIUM\VITAMIN D
  4. OCUVITE [Concomitant]
     Active Substance: VITAMINS

REACTIONS (6)
  - COVID-19 [None]
  - Oropharyngeal pain [None]
  - Fatigue [None]
  - Sinus congestion [None]
  - Headache [None]
  - Chills [None]

NARRATIVE: CASE EVENT DATE: 20231128
